FAERS Safety Report 7382572-0 (Version None)
Quarter: 2011Q1

REPORT INFORMATION
  Report Type: 
  Country: None (occurrence: None)
  Receive Date: 20110329
  Receipt Date: 20110317
  Transmission Date: 20110831
  Serious: No
  Sender: FDA-Public Use
  Company Number: US-BAYER-2011-024166

PATIENT
  Sex: Female

DRUGS (1)
  1. MIRENA [Suspect]
     Dosage: 20 ?G, CONT
     Route: 015
     Dates: start: 20101201, end: 20110101

REACTIONS (4)
  - OVARIAN CYST [None]
  - METRORRHAGIA [None]
  - ABDOMINAL PAIN [None]
  - DEVICE EXPULSION [None]
